FAERS Safety Report 11334884 (Version 1)
Quarter: 2015Q3

REPORT INFORMATION
  Report Type: Spontaneous
  Country: US (occurrence: US)
  Receive Date: 20150804
  Receipt Date: 20150804
  Transmission Date: 20151125
  Serious: Yes (Hospitalization, Other)
  Sender: FDA-Public Use
  Company Number: PHHY2015US091100

PATIENT
  Age: 65 Year
  Sex: Male

DRUGS (2)
  1. EVEROLIMUS [Suspect]
     Active Substance: EVEROLIMUS
     Indication: RENAL CELL CARCINOMA
     Dosage: 30 MG, QW
     Route: 048
     Dates: start: 200712, end: 200801
  2. SUNITINIB [Suspect]
     Active Substance: SUNITINIB
     Indication: RENAL CELL CARCINOMA
     Dosage: 50 MG, QD
     Route: 048
     Dates: start: 200712, end: 200801

REACTIONS (9)
  - Fatigue [Unknown]
  - Dehydration [Recovered/Resolved]
  - Mucosal inflammation [Recovered/Resolved]
  - Nausea [Unknown]
  - Thrombocytopenia [Recovering/Resolving]
  - Oral pain [Unknown]
  - Hypoglycaemia [Unknown]
  - Hypertension [Unknown]
  - Toxicity to various agents [Unknown]
